FAERS Safety Report 7473331-9 (Version None)
Quarter: 2011Q2

REPORT INFORMATION
  Report Type: 
  Country: None (occurrence: None)
  Receive Date: 20110503
  Receipt Date: 20110419
  Transmission Date: 20111010
  Serious: No
  Sender: FDA-Public Use
  Company Number: 201104059

PATIENT
  Age: 28 Year
  Sex: Female
  Weight: 54.4316 kg

DRUGS (3)
  1. MULTIVITAMIN [Concomitant]
  2. TESTIM [Suspect]
     Dosage: TRANSDERMAL
     Route: 062
  3. ASCORBIC ACID [Concomitant]

REACTIONS (7)
  - ACNE [None]
  - WRONG TECHNIQUE IN DRUG USAGE PROCESS [None]
  - NAUSEA [None]
  - MENSTRUAL DISORDER [None]
  - AGGRESSION [None]
  - HEADACHE [None]
  - ACCIDENTAL EXPOSURE [None]
